FAERS Safety Report 15067108 (Version 1)
Quarter: 2018Q2

REPORT INFORMATION
  Report Type: Spontaneous
  Country: FR (occurrence: FR)
  Receive Date: 20180626
  Receipt Date: 20180626
  Transmission Date: 20180711
  Serious: Yes (Hospitalization)
  Sender: FDA-Public Use
  Company Number: FR-GLAXOSMITHKLINE-FR2018108360

PATIENT
  Age: 93 Year
  Sex: Male
  Weight: 65 kg

DRUGS (4)
  1. AVODART [Suspect]
     Active Substance: DUTASTERIDE
     Indication: DYSURIA
     Dosage: UNK
     Route: 048
  2. TOVIAZ [Suspect]
     Active Substance: FESOTERODINE FUMARATE
     Indication: DYSURIA
     Dosage: UNK
     Route: 048
  3. UROREC [Suspect]
     Active Substance: SILODOSIN
     Indication: DYSURIA
     Dosage: UNK
     Route: 048
  4. RAMIPRIL. [Suspect]
     Active Substance: RAMIPRIL
     Indication: HYPERTENSION
     Dosage: UNK
     Route: 048

REACTIONS (2)
  - Fall [Recovered/Resolved]
  - Drug administration error [Recovered/Resolved]

NARRATIVE: CASE EVENT DATE: 20180206
